FAERS Safety Report 4779910-1 (Version None)
Quarter: 2005Q3

REPORT INFORMATION
  Report Type: 
  Country: None (occurrence: None)
  Receive Date: 20050914
  Receipt Date: 20050430
  Transmission Date: 20060218
  Serious: Yes (Hospitalization)
  Sender: FDA-Public Use
  Company Number: 163-20785-05050032

PATIENT
  Age: 58 Year
  Sex: Female

DRUGS (26)
  1. THALOMID [Suspect]
     Indication: MULTIPLE MYELOMA
     Dosage: 100-200MG, AT BEDTIME, ORAL
     Route: 048
     Dates: start: 20040714
  2. DEXAMETHASONE [Suspect]
     Indication: MULTIPLE MYELOMA
     Dosage: 20-40MG, DAILY, DAYS 1-4 OF CYCLE, ORAL
     Route: 048
     Dates: start: 20040714
  3. VELCADE [Suspect]
     Indication: MULTIPLE MYELOMA
     Dosage: UNKNOWN; UNKNOWN; 1 MG/M2 ON DAYS 1, 4, 8, AND 11 OF CYCLE, INTRAVENOUS;  1 MG/M2 ON DAYS 1, 4 , 8,
     Route: 042
     Dates: start: 20040714
  4. VELCADE [Suspect]
     Indication: MULTIPLE MYELOMA
     Dosage: UNKNOWN; UNKNOWN; 1 MG/M2 ON DAYS 1, 4, 8, AND 11 OF CYCLE, INTRAVENOUS;  1 MG/M2 ON DAYS 1, 4 , 8,
     Route: 042
     Dates: start: 20040809
  5. VELCADE [Suspect]
     Indication: MULTIPLE MYELOMA
     Dosage: UNKNOWN; UNKNOWN; 1 MG/M2 ON DAYS 1, 4, 8, AND 11 OF CYCLE, INTRAVENOUS;  1 MG/M2 ON DAYS 1, 4 , 8,
     Route: 042
     Dates: start: 20050120
  6. VELCADE [Suspect]
     Indication: MULTIPLE MYELOMA
     Dosage: UNKNOWN; UNKNOWN; 1 MG/M2 ON DAYS 1, 4, 8, AND 11 OF CYCLE, INTRAVENOUS;  1 MG/M2 ON DAYS 1, 4 , 8,
     Route: 042
     Dates: start: 20050318
  7. PLATINOL [Suspect]
     Indication: MULTIPLE MYELOMA
     Dosage: UNKNOWN; UNKNOWN; 7.5 MG/M2;  7.5 MG/M2
     Dates: start: 20040714
  8. PLATINOL [Suspect]
     Indication: MULTIPLE MYELOMA
     Dosage: UNKNOWN; UNKNOWN; 7.5 MG/M2;  7.5 MG/M2
     Dates: start: 20040809
  9. PLATINOL [Suspect]
     Indication: MULTIPLE MYELOMA
     Dosage: UNKNOWN; UNKNOWN; 7.5 MG/M2;  7.5 MG/M2
     Dates: start: 20050120
  10. PLATINOL [Suspect]
     Indication: MULTIPLE MYELOMA
     Dosage: UNKNOWN; UNKNOWN; 7.5 MG/M2;  7.5 MG/M2
     Dates: start: 20050318
  11. ADRIAMYCIN PFS [Suspect]
     Indication: MULTIPLE MYELOMA
     Dosage: UNKNOWN; UNKNOWN; 7.5 MG/M2 ON DAYS 1 TO 4 OF CYCLE, INTRAVENOUS; 7.5 MG/M2 ON DAYS 1 TO 4 OF CYCLE,
     Route: 042
     Dates: start: 20040714
  12. ADRIAMYCIN PFS [Suspect]
     Indication: MULTIPLE MYELOMA
     Dosage: UNKNOWN; UNKNOWN; 7.5 MG/M2 ON DAYS 1 TO 4 OF CYCLE, INTRAVENOUS; 7.5 MG/M2 ON DAYS 1 TO 4 OF CYCLE,
     Route: 042
     Dates: start: 20040809
  13. ADRIAMYCIN PFS [Suspect]
     Indication: MULTIPLE MYELOMA
     Dosage: UNKNOWN; UNKNOWN; 7.5 MG/M2 ON DAYS 1 TO 4 OF CYCLE, INTRAVENOUS; 7.5 MG/M2 ON DAYS 1 TO 4 OF CYCLE,
     Route: 042
     Dates: start: 20050120
  14. ADRIAMYCIN PFS [Suspect]
     Indication: MULTIPLE MYELOMA
     Dosage: UNKNOWN; UNKNOWN; 7.5 MG/M2 ON DAYS 1 TO 4 OF CYCLE, INTRAVENOUS; 7.5 MG/M2 ON DAYS 1 TO 4 OF CYCLE,
     Route: 042
     Dates: start: 20050318
  15. CYCLOPHOSPHAMIDE [Suspect]
     Indication: MULTIPLE MYELOMA
     Dosage: UNKNOWN; UNKNOWN; 300 MG/M2; 300 MG/M2
     Dates: start: 20040714
  16. CYCLOPHOSPHAMIDE [Suspect]
     Indication: MULTIPLE MYELOMA
     Dosage: UNKNOWN; UNKNOWN; 300 MG/M2; 300 MG/M2
     Dates: start: 20040809
  17. CYCLOPHOSPHAMIDE [Suspect]
     Indication: MULTIPLE MYELOMA
     Dosage: UNKNOWN; UNKNOWN; 300 MG/M2; 300 MG/M2
     Dates: start: 20050120
  18. CYCLOPHOSPHAMIDE [Suspect]
     Indication: MULTIPLE MYELOMA
     Dosage: UNKNOWN; UNKNOWN; 300 MG/M2; 300 MG/M2
     Dates: start: 20050318
  19. ETOPOSIDE [Suspect]
     Indication: MULTIPLE MYELOMA
     Dosage: UNKNOWN; UNKNOWN; 30 MG/M2; 30 MG/M2
     Dates: start: 20040714
  20. ETOPOSIDE [Suspect]
     Indication: MULTIPLE MYELOMA
     Dosage: UNKNOWN; UNKNOWN; 30 MG/M2; 30 MG/M2
     Dates: start: 20040809
  21. ETOPOSIDE [Suspect]
     Indication: MULTIPLE MYELOMA
     Dosage: UNKNOWN; UNKNOWN; 30 MG/M2; 30 MG/M2
     Dates: start: 20040907
  22. ETOPOSIDE [Suspect]
     Indication: MULTIPLE MYELOMA
     Dosage: UNKNOWN; UNKNOWN; 30 MG/M2; 30 MG/M2
     Dates: start: 20041122
  23. MELPHALAN (MELPHALAN) [Suspect]
     Indication: MULTIPLE MYELOMA
     Dosage: 200 MG/M2
     Dates: start: 20040917
  24. MELPHALAN (MELPHALAN) [Suspect]
     Indication: MULTIPLE MYELOMA
     Dosage: 200 MG/M2
     Dates: start: 20041122
  25. ZOMETA [Concomitant]
  26. LOVENOX [Concomitant]

REACTIONS (2)
  - DEHYDRATION [None]
  - PNEUMONIA [None]
